FAERS Safety Report 20922902 (Version 2)
Quarter: 2022Q2

REPORT INFORMATION
  Report Type: Other
  Country: US (occurrence: None)
  Receive Date: 20220607
  Receipt Date: 20220621
  Transmission Date: 20220721
  Serious: Yes (Other)
  Sender: FDA-Public Use
  Company Number: US-ROCHE-3108212

PATIENT
  Sex: Male
  Weight: 84.82 kg

DRUGS (1)
  1. OCREVUS [Suspect]
     Active Substance: OCRELIZUMAB
     Indication: Product used for unknown indication
     Route: 042

REACTIONS (9)
  - Pupillary reflex impaired [Unknown]
  - Amblyopia [Unknown]
  - Headache [Unknown]
  - COVID-19 [Unknown]
  - Strabismus [Unknown]
  - Optic atrophy [Unknown]
  - Optic neuritis [Unknown]
  - Restless legs syndrome [Unknown]
  - Body temperature decreased [Unknown]
